FAERS Safety Report 23398611 (Version 1)
Quarter: 2024Q1

REPORT INFORMATION
  Report Type: Spontaneous
  Country: JP (occurrence: JP)
  Receive Date: 20240112
  Receipt Date: 20240112
  Transmission Date: 20240410
  Serious: Yes (Other)
  Sender: FDA-Public Use
  Company Number: JP-CORZA MEDICAL GMBH-2023-JP-002235

PATIENT
  Age: 77 Year
  Sex: Male

DRUGS (3)
  1. TACHOSIL [Suspect]
     Active Substance: FIBRINOGEN HUMAN\THROMBIN HUMAN
     Indication: Dural tear
     Dosage: UNK
     Route: 065
  2. BERIPLAST P COMBI [Suspect]
     Active Substance: APROTININ\CALCIUM CHLORIDE\FIBRINOGEN HUMAN\FACTOR XIII CONCENTRATE (HUMAN)\THROMBIN
     Indication: Dural tear
     Dosage: UNK
     Route: 065
  3. POLYGLYCOLIC ACID [Suspect]
     Active Substance: POLYGLYCOLIC ACID
     Indication: Dural tear
     Dosage: UNK
     Route: 065

REACTIONS (1)
  - Drug ineffective [Unknown]
